FAERS Safety Report 18117274 (Version 1)
Quarter: 2020Q3

REPORT INFORMATION
  Report Type: Spontaneous
  Country: GR (occurrence: GR)
  Receive Date: 20200805
  Receipt Date: 20200805
  Transmission Date: 20201103
  Serious: Yes (Death)
  Sender: FDA-Public Use
  Company Number: GR-BAXTER-2017BAX046179

PATIENT
  Age: 73 Year
  Sex: Male

DRUGS (7)
  1. PREDNISOLONE. [Suspect]
     Active Substance: PREDNISOLONE
     Indication: IMMUNOCHEMOTHERAPY
     Route: 065
  2. IMMUNOGLOBULIN [Concomitant]
     Indication: HAEMOPHAGOCYTIC LYMPHOHISTIOCYTOSIS
     Route: 042
  3. METHYLPREDNISOLONE. [Suspect]
     Active Substance: METHYLPREDNISOLONE
     Indication: HAEMOPHAGOCYTIC LYMPHOHISTIOCYTOSIS
     Dosage: 1 G, FOR 3 DAYS
     Route: 065
  4. VINCRISTINE SULFATE. [Suspect]
     Active Substance: VINCRISTINE SULFATE
     Indication: IMMUNOCHEMOTHERAPY
     Dosage: 2 MG, UNK
     Route: 065
  5. ETOPOSIDE. [Suspect]
     Active Substance: ETOPOSIDE
     Indication: IMMUNOCHEMOTHERAPY
     Dosage: 100 MG, D1
     Route: 065
  6. ENDOXAN 1000 MG ? POWDER FOR SOLUTION FOR INJECTION [Suspect]
     Active Substance: CYCLOPHOSPHAMIDE
     Indication: IMMUNOCHEMOTHERAPY
     Route: 065
  7. RITUXIMAB. [Suspect]
     Active Substance: RITUXIMAB
     Indication: IMMUNOCHEMOTHERAPY
     Dosage: 375 MG/M2, UNK
     Route: 065

REACTIONS (5)
  - Bacterial sepsis [Fatal]
  - Pancytopenia [Fatal]
  - Condition aggravated [Fatal]
  - Acinetobacter infection [Fatal]
  - Drug ineffective [Fatal]
